FAERS Safety Report 6446244-9 (Version None)
Quarter: 2009Q4

REPORT INFORMATION
  Report Type: 
  Country: None (occurrence: None)
  Receive Date: 20091119
  Receipt Date: 20091111
  Transmission Date: 20100525
  Serious: No
  Sender: FDA-Public Use
  Company Number: US-ASTRAZENECA-2009SE14977

PATIENT
  Age: 82 Year
  Sex: Female
  Weight: 47.6 kg

DRUGS (2)
  1. ARIMIDEX [Suspect]
     Indication: BREAST CANCER
     Route: 048
     Dates: start: 20040101, end: 20090901
  2. THYROID MEDICATION [Concomitant]

REACTIONS (3)
  - BACK PAIN [None]
  - OEDEMA [None]
  - PANCREATITIS [None]
